FAERS Safety Report 7913942-7 (Version None)
Quarter: 2011Q4

REPORT INFORMATION
  Report Type: 
  Country: None (occurrence: None)
  Receive Date: 20111115
  Receipt Date: 20111110
  Transmission Date: 20120403
  Serious: Yes (Other)
  Sender: FDA-Public Use
  Company Number: US-PFIZER INC-2011276270

PATIENT
  Sex: Female
  Weight: 102 kg

DRUGS (2)
  1. LYRICA [Suspect]
     Indication: PAIN
     Dosage: UNK, 2X/DAY
     Route: 048
     Dates: start: 20110901, end: 20111001
  2. LYRICA [Suspect]
     Indication: OEDEMA PERIPHERAL

REACTIONS (8)
  - HAEMOGLOBIN DECREASED [None]
  - NASOPHARYNGITIS [None]
  - HYPERTENSION [None]
  - NERVOUSNESS [None]
  - DIABETES MELLITUS [None]
  - FEELING ABNORMAL [None]
  - HYPERHIDROSIS [None]
  - HEADACHE [None]
